FAERS Safety Report 13431350 (Version 1)
Quarter: 2017Q2

REPORT INFORMATION
  Report Type: Spontaneous
  Country: DE (occurrence: DE)
  Receive Date: 20170412
  Receipt Date: 20170412
  Transmission Date: 20170830
  Serious: Yes (Hospitalization)
  Sender: FDA-Public Use
  Company Number: DE-ALKABELLO-2017AA001433

PATIENT
  Sex: Male

DRUGS (1)
  1. ACARIZAX 12 SQ-HDM LYOPHILISAT ZUM EINNEHMEN [Suspect]
     Active Substance: DERMATOPHAGOIDES FARINAE\DERMATOPHAGOIDES PTERONYSSINUS

REACTIONS (3)
  - Dyspnoea [Recovered/Resolved]
  - Chills [Recovered/Resolved]
  - Discomfort [Recovered/Resolved]
